FAERS Safety Report 17664272 (Version 1)
Quarter: 2020Q2

REPORT INFORMATION
  Report Type: Spontaneous
  Country: DE (occurrence: DE)
  Receive Date: 20200414
  Receipt Date: 20200414
  Transmission Date: 20200713
  Serious: Yes (Hospitalization)
  Sender: FDA-Public Use
  Company Number: DE-UCBSA-2020014878

PATIENT
  Age: 38 Year
  Sex: Male
  Weight: 76 kg

DRUGS (3)
  1. IBUPROFEN. [Concomitant]
     Active Substance: IBUPROFEN
     Indication: PRODUCT USED FOR UNKNOWN INDICATION
     Dosage: 600MG WHEN REQUIRED
     Dates: start: 2016
  2. CIMZIA [Suspect]
     Active Substance: CERTOLIZUMAB PEGOL
     Indication: RHEUMATOID ARTHRITIS
     Dosage: 200MG ALLE 3 WOCHEN
     Dates: start: 20180719, end: 20191205
  3. PREDNISOLONE [PREDNISOLONE SODIUM PHOSPHATE] [Concomitant]
     Active Substance: PREDNISOLONE SODIUM PHOSPHATE
     Indication: PRODUCT USED FOR UNKNOWN INDICATION
     Dosage: 5 MILLIGRAM WHEN REQUIRED
     Dates: start: 201703

REACTIONS (2)
  - Off label use [Unknown]
  - Pancreatitis [Recovering/Resolving]

NARRATIVE: CASE EVENT DATE: 20180719
